FAERS Safety Report 8385818-5 (Version None)
Quarter: 2012Q2

REPORT INFORMATION
  Report Type: 
  Country: None (occurrence: None)
  Receive Date: 20120525
  Receipt Date: 20120521
  Transmission Date: 20120825
  Serious: Yes (Hospitalization)
  Sender: FDA-Public Use
  Company Number: US-BAYER-2011-022044

PATIENT
  Age: 46 Year
  Sex: Female
  Weight: 70.295 kg

DRUGS (7)
  1. ALKA SELTZER [Concomitant]
     Indication: INFLUENZA LIKE ILLNESS
     Dosage: UNK
     Dates: start: 20030101
  2. MAXALT [Concomitant]
     Dosage: UNK
     Dates: start: 20070531
  3. TYLENOL [Concomitant]
     Indication: INFLUENZA LIKE ILLNESS
     Dosage: UNK
     Dates: start: 20030101
  4. CALCIUM CARBONATE [Concomitant]
  5. ADVIL [Concomitant]
     Indication: INFLUENZA LIKE ILLNESS
     Dosage: UNK
     Dates: start: 20030101
  6. CALCIUM [Concomitant]
     Dosage: UNK
     Dates: start: 20070531
  7. YAZ [Suspect]
     Indication: ORAL CONTRACEPTION
     Dosage: UNK
     Route: 048
     Dates: end: 20070530

REACTIONS (7)
  - ACNE [None]
  - THROMBOSIS [None]
  - ANGINA PECTORIS [None]
  - PULMONARY EMBOLISM [None]
  - OVARIAN CYST [None]
  - DYSPNOEA [None]
  - MIGRAINE [None]
